FAERS Safety Report 22340241 (Version 2)
Quarter: 2024Q4

REPORT INFORMATION
  Report Type: Report from Study
  Country: US (occurrence: US)
  Receive Date: 20230518
  Receipt Date: 20241022
  Transmission Date: 20250114
  Serious: Yes (Other)
  Sender: JAZZ
  Company Number: US-JAZZ PHARMACEUTICALS-2023-US-008311

PATIENT
  Age: 32 Year
  Sex: Female

DRUGS (16)
  1. SODIUM OXYBATE [Suspect]
     Active Substance: SODIUM OXYBATE
     Indication: Narcolepsy
     Dosage: 4.5 GRAM, BID
  2. SODIUM OXYBATE [Suspect]
     Active Substance: SODIUM OXYBATE
     Indication: Cataplexy
     Dosage: UNK
  3. SODIUM OXYBATE [Suspect]
     Active Substance: SODIUM OXYBATE
     Indication: Somnolence
     Dosage: 4.5 MILLILITER, BID
     Route: 048
  4. SODIUM OXYBATE [Suspect]
     Active Substance: SODIUM OXYBATE
     Dosage: UNK
  5. SINGULAIR [Concomitant]
     Active Substance: MONTELUKAST SODIUM
     Dosage: UNK
     Dates: start: 20211019
  6. PROAIR HFA [Concomitant]
     Active Substance: ALBUTEROL SULFATE
     Indication: Product used for unknown indication
     Dosage: UNK
     Dates: start: 20220101
  7. EFFEXOR [Concomitant]
     Active Substance: VENLAFAXINE HYDROCHLORIDE
     Indication: Anxiety
     Dosage: UNK
     Dates: start: 20240601
  8. EFFEXOR [Concomitant]
     Active Substance: VENLAFAXINE HYDROCHLORIDE
     Indication: Cataplexy
  9. TYLENOL [Concomitant]
     Active Substance: ACETAMINOPHEN
     Indication: Pain
     Dosage: UNK
  10. ADVIL [Concomitant]
     Active Substance: IBUPROFEN
     Indication: Pain
     Dosage: UNK
  11. RITALIN [Concomitant]
     Active Substance: METHYLPHENIDATE HYDROCHLORIDE
     Indication: Product used for unknown indication
     Dosage: UNK
  12. VENTOLIN HFA [Concomitant]
     Active Substance: ALBUTEROL SULFATE
     Indication: Wheezing
     Dosage: UNK
  13. PROVENTIL [Concomitant]
     Active Substance: ALBUTEROL
     Indication: Wheezing
     Dosage: UNK
  14. ZYRTEC [Concomitant]
     Active Substance: CETIRIZINE HYDROCHLORIDE
     Indication: Product used for unknown indication
     Dosage: UNK
  15. BREO ELLIPTA [Concomitant]
     Active Substance: FLUTICASONE FUROATE\VILANTEROL TRIFENATATE
     Indication: Pneumonia
     Dosage: UNK
  16. ALBUTEROL [Concomitant]
     Active Substance: ALBUTEROL
     Indication: Pneumonia
     Dosage: UNK

REACTIONS (8)
  - Pneumonia [Not Recovered/Not Resolved]
  - Buttock injury [Not Recovered/Not Resolved]
  - Blood pressure increased [Unknown]
  - Respiratory tract infection [Unknown]
  - Limb injury [Unknown]
  - Fall [Unknown]
  - Product administration interrupted [Unknown]
  - Wrong technique in product usage process [Unknown]

NARRATIVE: CASE EVENT DATE: 20230401
